FAERS Safety Report 14946588 (Version 1)
Quarter: 2018Q2

REPORT INFORMATION
  Report Type: Spontaneous
  Country: US (occurrence: US)
  Receive Date: 20180508
  Receipt Date: 20180508
  Transmission Date: 20180711
  Serious: Yes (Other)
  Sender: FDA-Public Use
  Company Number: None

PATIENT
  Sex: Female

DRUGS (1)
  1. RASUVO [Suspect]
     Active Substance: METHOTREXATE SODIUM
     Indication: RHEUMATOID ARTHRITIS
     Dosage: 15MILLIGRAM /3MILITE ONCE EVERY 7 DAYS :ONCE EVERY 7 DAYS;?
     Route: 058
     Dates: start: 20180213

REACTIONS (2)
  - Fatigue [None]
  - Device malfunction [None]
